FAERS Safety Report 5578183-X (Version None)
Quarter: 2007Q4

REPORT INFORMATION
  Report Type: 
  Country: None (occurrence: None)
  Receive Date: 20071231
  Receipt Date: 20071220
  Transmission Date: 20080405
  Serious: Yes (Hospitalization, Other)
  Sender: FDA-Public Use
  Company Number: ES-PFIZER INC-2007107913

PATIENT
  Age: 61 Year
  Sex: Male

DRUGS (6)
  1. CARDYL [Suspect]
     Indication: HYPERLIPIDAEMIA
     Route: 048
  2. COPALCHI [Suspect]
     Indication: DIABETES MELLITUS
     Dosage: FREQ:EVERY DAY
     Route: 048
     Dates: start: 20070101, end: 20071015
  3. LANSOPRAZOL [Concomitant]
     Indication: PROPHYLAXIS AGAINST GASTROINTESTINAL ULCER
     Dosage: DAILY DOSE:30MG-FREQ:DAILY
     Route: 048
  4. PLAVIX [Concomitant]
     Indication: ISCHAEMIC CARDIOMYOPATHY
     Dosage: DAILY DOSE:75MG-FREQ:DAILY
     Route: 048
  5. UNIKET [Concomitant]
     Indication: ISCHAEMIC CARDIOMYOPATHY
     Dosage: DAILY DOSE:50MG-FREQ:DAILY
     Route: 048
  6. TRANXILIUM [Concomitant]
     Dosage: DAILY DOSE:5MG-FREQ:DAILY
     Route: 048

REACTIONS (1)
  - AUTOIMMUNE HEPATITIS [None]
